FAERS Safety Report 5814162-2 (Version None)
Quarter: 2008Q3

REPORT INFORMATION
  Report Type: 
  Country: None (occurrence: None)
  Receive Date: 20080715
  Receipt Date: 20080630
  Transmission Date: 20090109
  Serious: Yes (Death)
  Sender: FDA-Public Use
  Company Number: 14628

PATIENT
  Sex: Female

DRUGS (1)
  1. MORPHINE SULFATE ER 60 MG TABS (ETHEX CORPORATION) [Suspect]
     Indication: CANCER PAIN
     Dosage: ORALLY
     Dates: start: 20080201

REACTIONS (2)
  - CERVIX CARCINOMA [None]
  - PHARMACEUTICAL PRODUCT COMPLAINT [None]
